FAERS Safety Report 10261818 (Version 1)
Quarter: 2014Q2

REPORT INFORMATION
  Report Type: Spontaneous
  Country: US (occurrence: US)
  Receive Date: 20140626
  Receipt Date: 20140626
  Transmission Date: 20141212
  Serious: Yes (Other)
  Sender: FDA-Public Use
  Company Number: PHHY2014US074746

PATIENT
  Age: 65 Year
  Sex: Male

DRUGS (2)
  1. ITRACONAZOLE [Suspect]
     Indication: PROSTATE CANCER RECURRENT
     Dosage: 300 MG, BID
  2. ITRACONAZOLE [Suspect]
     Indication: OFF LABEL USE

REACTIONS (2)
  - Hyperbilirubinaemia [Recovered/Resolved]
  - Fatigue [Unknown]
